FAERS Safety Report 19287391 (Version 2)
Quarter: 2021Q2

REPORT INFORMATION
  Report Type: Spontaneous
  Country: FR (occurrence: FR)
  Receive Date: 20210522
  Receipt Date: 20210524
  Transmission Date: 20210717
  Serious: Yes (Hospitalization, Other)
  Sender: FDA-Public Use
  Company Number: FR-AUROBINDO-AUR-APL-2015-06647

PATIENT
  Age: 35 Year
  Sex: Female

DRUGS (1)
  1. OMEPRAZOLE. [Suspect]
     Active Substance: OMEPRAZOLE
     Indication: DYSPEPSIA
     Dosage: UNK
     Route: 065

REACTIONS (12)
  - Toxicity to various agents [Recovered/Resolved]
  - Hypocalcaemia [Recovered/Resolved]
  - Muscle spasms [Recovered/Resolved]
  - Hypokalaemia [Recovered/Resolved]
  - Chvostek^s sign [Recovered/Resolved]
  - Tetany [Recovered/Resolved]
  - Trousseau^s sign [Recovered/Resolved]
  - Hypomagnesaemia [Recovered/Resolved]
  - Paraesthesia [Recovered/Resolved]
  - Blood creatine phosphokinase increased [Recovered/Resolved]
  - Blood potassium increased [Recovered/Resolved]
  - Hypoparathyroidism [Recovered/Resolved]
